FAERS Safety Report 9514802 (Version 1)
Quarter: 2013Q3

REPORT INFORMATION
  Report Type: Spontaneous
  Country: IT (occurrence: IT)
  Receive Date: 20130911
  Receipt Date: 20130911
  Transmission Date: 20140515
  Serious: Yes (Other)
  Sender: FDA-Public Use
  Company Number: IT-ACCORD-019365

PATIENT
  Age: 85 Year
  Sex: Male

DRUGS (6)
  1. AMLODIPINE [Suspect]
     Indication: PRODUCT USED FOR UNKNOWN INDICATION
     Route: 048
     Dates: start: 20120701, end: 20130630
  2. OLMESARTAN [Suspect]
     Indication: PRODUCT USED FOR UNKNOWN INDICATION
     Route: 048
     Dates: start: 20120701, end: 20130630
  3. ASCRIPTIN [Concomitant]
     Dosage: 20 TABLETS
  4. RIOPAN [Concomitant]
  5. INDOMETHACIN [Concomitant]
     Indication: BURSITIS
  6. PANTOPRAZOLE [Concomitant]

REACTIONS (2)
  - Hyponatraemia [Recovering/Resolving]
  - Syncope [Recovering/Resolving]
